FAERS Safety Report 13531787 (Version 1)
Quarter: 2017Q2

REPORT INFORMATION
  Report Type: Spontaneous
  Country: CA (occurrence: CA)
  Receive Date: 20170510
  Receipt Date: 20170510
  Transmission Date: 20170830
  Serious: Yes (Hospitalization)
  Sender: FDA-Public Use
  Company Number: CA-JNJFOC-20170506479

PATIENT
  Sex: Female

DRUGS (6)
  1. BACITRACIN. [Concomitant]
     Active Substance: BACITRACIN
     Dosage: THERAPY DURATION 2 DAYS
     Route: 064
  2. COTRIMOXAZOLE [Concomitant]
     Active Substance: SULFAMETHOXAZOLE\TRIMETHOPRIM
     Dosage: THERAPY DURATION 2 DAYS
     Route: 065
  3. IMODIUM [Suspect]
     Active Substance: LOPERAMIDE HYDROCHLORIDE
     Route: 064
  4. NETILMICIN [Concomitant]
     Active Substance: NETILMICIN
     Route: 064
  5. NEOMYCIN [Concomitant]
     Active Substance: NEOMYCIN
     Dosage: THERAPY DURATION 2 DAYS
     Route: 064
  6. IMODIUM [Suspect]
     Active Substance: LOPERAMIDE HYDROCHLORIDE
     Indication: PRODUCT USED FOR UNKNOWN INDICATION
     Dosage: TREATMENT DURATION 2 DAYS
     Route: 064

REACTIONS (2)
  - Jaundice [Unknown]
  - Foetal exposure during pregnancy [Unknown]
